FAERS Safety Report 17686775 (Version 1)
Quarter: 2020Q2

REPORT INFORMATION
  Report Type: Spontaneous
  Country: DE (occurrence: DE)
  Receive Date: 20200421
  Receipt Date: 20200421
  Transmission Date: 20200714
  Serious: Yes (Other)
  Sender: FDA-Public Use
  Company Number: DE-EUSA PHARMA (NETHERLANDS) B.V.-2020DE000090

PATIENT
  Age: 67 Year
  Sex: Female

DRUGS (1)
  1. SYLVANT [Suspect]
     Active Substance: SILTUXIMAB
     Indication: CASTLEMAN^S DISEASE
     Route: 065

REACTIONS (2)
  - Disease progression [Unknown]
  - Embolic stroke [Unknown]
